FAERS Safety Report 7319535-7 (Version None)
Quarter: 2011Q1

REPORT INFORMATION
  Report Type: 
  Country: None (occurrence: None)
  Receive Date: 20110228
  Receipt Date: 20100506
  Transmission Date: 20110831
  Serious: No
  Sender: FDA-Public Use
  Company Number: A0858541A

PATIENT
  Age: 46 Year
  Sex: Male

DRUGS (5)
  1. LISINOPRIL [Concomitant]
  2. FISH OIL CAPSULES [Concomitant]
  3. METFORMIN [Concomitant]
  4. XANAX [Concomitant]
  5. LAMICTAL [Suspect]
     Indication: BIPOLAR DISORDER
     Route: 048

REACTIONS (2)
  - FATIGUE [None]
  - VISION BLURRED [None]
